FAERS Safety Report 12470499 (Version 1)
Quarter: 2016Q2

REPORT INFORMATION
  Report Type: Spontaneous
  Country: GH (occurrence: GH)
  Receive Date: 20160616
  Receipt Date: 20160616
  Transmission Date: 20160815
  Serious: Yes (Hospitalization)
  Sender: FDA-Public Use
  Company Number: GH-ASTRAZENECA-2016SE64920

PATIENT
  Age: 28 Year
  Sex: Female

DRUGS (2)
  1. AMIKACIN [Concomitant]
     Active Substance: AMIKACIN
  2. MERONEM [Suspect]
     Active Substance: MEROPENEM
     Route: 042

REACTIONS (1)
  - Pathogen resistance [Unknown]
